FAERS Safety Report 5165583-5 (Version None)
Quarter: 2006Q4

REPORT INFORMATION
  Report Type: 
  Country: None (occurrence: None)
  Receive Date: 20061206
  Receipt Date: 20061127
  Transmission Date: 20070319
  Serious: Yes (Hospitalization)
  Sender: FDA-Public Use
  Company Number: FR-GLAXOSMITHKLINE-B0448246A

PATIENT
  Age: 26 Year
  Sex: Female

DRUGS (2)
  1. COMBIVIR [Suspect]
     Indication: ACCIDENTAL EXPOSURE
     Dosage: 1TAB TWICE PER DAY
     Route: 048
     Dates: start: 20061013, end: 20061019
  2. KALETRA [Suspect]
     Indication: ACCIDENTAL EXPOSURE
     Dosage: 2TAB TWICE PER DAY
     Route: 048
     Dates: start: 20061013

REACTIONS (2)
  - RASH PRURITIC [None]
  - URTICARIA [None]
